FAERS Safety Report 12868926 (Version 1)
Quarter: 2016Q4

REPORT INFORMATION
  Report Type: Spontaneous
  Country: US (occurrence: US)
  Receive Date: 20161021
  Receipt Date: 20161021
  Transmission Date: 20170207
  Serious: No
  Sender: FDA-Public Use
  Company Number: US-PFIZER INC-2016487296

PATIENT
  Age: 34 Year
  Sex: Female

DRUGS (2)
  1. ALYACEN [Concomitant]
     Indication: CONTRACEPTION
     Dosage: 1 DF, DAILY (1 TABLET A DAY BY MOUTH)
     Route: 048
  2. SERTRALINE HCL [Suspect]
     Active Substance: SERTRALINE HYDROCHLORIDE
     Dosage: UNK, 1X/DAY (TAKE 3ML, 60MG ONCE DAILY BY MOUTH)
     Route: 048
     Dates: end: 201610

REACTIONS (1)
  - Rash [Not Recovered/Not Resolved]

NARRATIVE: CASE EVENT DATE: 201610
